FAERS Safety Report 10540136 (Version 2)
Quarter: 2015Q1

REPORT INFORMATION
  Report Type: Spontaneous
  Country: US (occurrence: None)
  Receive Date: 20141022
  Receipt Date: 20150128
  Transmission Date: 20150720
  Serious: Yes (Hospitalization)
  Sender: FDA-Public Use
  Company Number: KAD201410-001289

PATIENT
  Age: 71 Year
  Sex: Female

DRUGS (7)
  1. PREMARIN (CONJUGATED ESTROGEN) [Concomitant]
  2. SYNTHROID [Concomitant]
     Active Substance: LEVOTHYROXINE SODIUM
  3. INTERFERON ALFACON-1 [Suspect]
     Active Substance: INTERFERON ALFACON-1
     Indication: HEPATITIS C
  4. FILGRASTIM [Concomitant]
     Active Substance: FILGRASTIM
  5. AMILORIDE HYDROCHLORIDE. [Concomitant]
     Active Substance: AMILORIDE HYDROCHLORIDE
  6. ERYTHROPOIETIN [Concomitant]
     Active Substance: ERYTHROPOIETIN
  7. RIBAVIRIN. [Suspect]
     Active Substance: RIBAVIRIN
     Indication: HEPATITIS C

REACTIONS (2)
  - Interstitial lung disease [None]
  - Granulomatous pneumonitis [None]
